FAERS Safety Report 12472280 (Version 1)
Quarter: 2016Q2

REPORT INFORMATION
  Report Type: Report from Study
  Country: BR (occurrence: BR)
  Receive Date: 20160616
  Receipt Date: 20160616
  Transmission Date: 20160815
  Serious: Yes (Other)
  Sender: FDA-Public Use
  Company Number: BR-ABBVIE-16K-020-1649130-00

PATIENT
  Age: 72 Year
  Sex: Female
  Weight: 73 kg

DRUGS (3)
  1. ISONIAZID. [Suspect]
     Active Substance: ISONIAZID
     Indication: LUNG DISORDER
     Route: 048
     Dates: start: 201604
  2. HUMIRA [Suspect]
     Active Substance: ADALIMUMAB
     Indication: RHEUMATOID ARTHRITIS
     Route: 058
     Dates: start: 20151214, end: 201604
  3. RIFAMPICIN [Suspect]
     Active Substance: RIFAMPIN
     Indication: LUNG DISORDER
     Route: 048
     Dates: start: 201604

REACTIONS (16)
  - Chest X-ray abnormal [Unknown]
  - Tuberculosis [Unknown]
  - Pleural effusion [Recovered/Resolved]
  - Pain in extremity [Not Recovered/Not Resolved]
  - Immunodeficiency [Unknown]
  - Vomiting [Unknown]
  - Hypophagia [Unknown]
  - Pain in extremity [Recovered/Resolved]
  - Musculoskeletal pain [Recovered/Resolved]
  - Body height decreased [Recovered/Resolved]
  - Musculoskeletal stiffness [Unknown]
  - Neuralgia [Unknown]
  - Weight decreased [Recovered/Resolved]
  - Throat irritation [Unknown]
  - Bone swelling [Unknown]
  - Peripheral swelling [Not Recovered/Not Resolved]

NARRATIVE: CASE EVENT DATE: 201604
